FAERS Safety Report 14494680 (Version 2)
Quarter: 2019Q2

REPORT INFORMATION
  Report Type: Report from Study
  Country: BR (occurrence: BR)
  Receive Date: 20180206
  Receipt Date: 20190522
  Transmission Date: 20190711
  Serious: Yes (Hospitalization, Other)
  Sender: FDA-Public Use
  Company Number: PHHY2018BR018672

PATIENT
  Age: 57 Year
  Sex: Female
  Weight: 53 kg

DRUGS (1)
  1. ACLASTA [Suspect]
     Active Substance: ZOLEDRONIC ACID
     Indication: OSTEOPOROSIS
     Dosage: 1 DF (5 MG/100 ML), Q12MO
     Route: 042
     Dates: start: 20161101

REACTIONS (10)
  - Weight decreased [Not Recovered/Not Resolved]
  - Pain [Unknown]
  - Bone fissure [Not Recovered/Not Resolved]
  - Tibia fracture [Not Recovered/Not Resolved]
  - Influenza [Unknown]
  - Inguinal hernia [Unknown]
  - Lower limb fracture [Unknown]
  - Muscular weakness [Not Recovered/Not Resolved]
  - Bone density decreased [Not Recovered/Not Resolved]
  - Arthritis [Unknown]

NARRATIVE: CASE EVENT DATE: 2017
